FAERS Safety Report 14487782 (Version 2)
Quarter: 2018Q1

REPORT INFORMATION
  Report Type: Spontaneous
  Country: IT (occurrence: IT)
  Receive Date: 20180205
  Receipt Date: 20180206
  Transmission Date: 20180509
  Serious: Yes (Other)
  Sender: FDA-Public Use
  Company Number: IT-ABBVIE-18K-083-2245512-00

PATIENT
  Age: 23 Year
  Sex: Female
  Weight: 82 kg

DRUGS (1)
  1. ADALIMUMAB [Suspect]
     Active Substance: ADALIMUMAB
     Indication: HIDRADENITIS
     Route: 058
     Dates: start: 20180109, end: 20180128

REACTIONS (2)
  - Hyperpyrexia [Not Recovered/Not Resolved]
  - Erysipelas [Not Recovered/Not Resolved]

NARRATIVE: CASE EVENT DATE: 20180128
